FAERS Safety Report 12674964 (Version 2)
Quarter: 2016Q3

REPORT INFORMATION
  Report Type: Report from Study
  Country: US (occurrence: US)
  Receive Date: 20160822
  Receipt Date: 20160906
  Transmission Date: 20161109
  Serious: Yes (Death, Hospitalization)
  Sender: FDA-Public Use
  Company Number: US-ASTRAZENECA-2016SE21442

PATIENT
  Age: 24204 Day
  Sex: Female

DRUGS (1)
  1. LYNPARZA [Suspect]
     Active Substance: OLAPARIB
     Indication: OVARIAN CANCER
     Route: 048
     Dates: start: 20160211, end: 20160811

REACTIONS (12)
  - Constipation [Unknown]
  - Dehydration [Unknown]
  - Asthenia [Unknown]
  - Headache [Unknown]
  - Pneumonia [Fatal]
  - Tibia fracture [Recovering/Resolving]
  - Fall [Recovering/Resolving]
  - Paraesthesia [Unknown]
  - Blood creatine increased [Unknown]
  - Diarrhoea [Not Recovered/Not Resolved]
  - Tremor [Unknown]
  - Abdominal distension [Not Recovered/Not Resolved]

NARRATIVE: CASE EVENT DATE: 20160725
